FAERS Safety Report 9832016 (Version 2)
Quarter: 2014Q1

REPORT INFORMATION
  Report Type: Report from Study
  Country: FR (occurrence: FR)
  Receive Date: 20140121
  Receipt Date: 20140205
  Transmission Date: 20141002
  Serious: Yes (Other)
  Sender: FDA-Public Use
  Company Number: PHHY2013FR138931

PATIENT
  Sex: Female

DRUGS (2)
  1. RITALINE [Suspect]
     Indication: ATTENTION DEFICIT/HYPERACTIVITY DISORDER
     Dosage: UNK UKN, UNK
  2. RITALINE [Suspect]
     Indication: OFF LABEL USE

REACTIONS (7)
  - Hepatitis [Recovered/Resolved]
  - Aphagia [Not Recovered/Not Resolved]
  - Malaise [Unknown]
  - Nausea [Unknown]
  - Dark circles under eyes [Recovered/Resolved]
  - Gastric disorder [Unknown]
  - Somnolence [Not Recovered/Not Resolved]
